FAERS Safety Report 17647811 (Version 1)
Quarter: 2020Q2

REPORT INFORMATION
  Report Type: Spontaneous
  Country: CN (occurrence: CN)
  Receive Date: 20200408
  Receipt Date: 20200408
  Transmission Date: 20200713
  Serious: Yes (Other)
  Sender: FDA-Public Use
  Company Number: CN-BAXTER-2020BAX007192

PATIENT
  Age: 51 Year
  Sex: Female
  Weight: 60 kg

DRUGS (4)
  1. 0.9% SODIUM CHLORIDE INJECTION [Suspect]
     Active Substance: SODIUM CHLORIDE
     Indication: MEDICATION DILUTION
     Dosage: EC REGIMEN, FIRST CHEMOTHERAPY, CYCLOPHOSPHAMIDE + SODIUM CHLORIDE
     Route: 041
     Dates: start: 20200218, end: 20200218
  2. ENDOXAN [Suspect]
     Active Substance: CYCLOPHOSPHAMIDE
     Indication: BREAST CANCER FEMALE
     Dosage: EC REGIMEN, FIRST CHEMOTHERAPY, CYCLOPHOSPHAMIDE + SODIUM CHLORIDE 100  ML
     Route: 041
     Dates: start: 20200218, end: 20200218
  3. PHARMORUBICIN [Suspect]
     Active Substance: EPIRUBICIN
     Indication: BREAST CANCER FEMALE
     Dosage: EC REGIMEN, FIRST CHEMOTHERAPY, PHARMORUBICIN + SODIUM CHLORIDE 150 ML
     Route: 041
     Dates: start: 20200218, end: 20200218
  4. SODIUM CHLORIDE. [Suspect]
     Active Substance: SODIUM CHLORIDE
     Indication: MEDICATION DILUTION
     Dosage: EC REGIMEN, FIRST CHEMOTHERAPY, PHARMORUBICIN + SODIUM CHLORIDE
     Route: 041
     Dates: start: 20200218, end: 20200218

REACTIONS (3)
  - Vomiting [Recovering/Resolving]
  - Bone marrow failure [Recovered/Resolved]
  - Nausea [Recovering/Resolving]

NARRATIVE: CASE EVENT DATE: 202002
